FAERS Safety Report 18600338 (Version 1)
Quarter: 2020Q4

REPORT INFORMATION
  Report Type: Spontaneous
  Country: DE (occurrence: DK)
  Receive Date: 20201210
  Receipt Date: 20201210
  Transmission Date: 20210114
  Serious: Yes (Other)
  Sender: FDA-Public Use
  Company Number: DE-BAYER-2019-195102

PATIENT
  Sex: Male

DRUGS (1)
  1. INTERFERON BETA - 1B [Suspect]
     Active Substance: INTERFERON BETA-1B
     Indication: CHRONIC MYELOID LEUKAEMIA
     Dosage: UNK
     Route: 065
     Dates: start: 20190128, end: 20190506

REACTIONS (4)
  - Product use in unapproved indication [None]
  - Drug ineffective [None]
  - Chronic myeloid leukaemia [None]
  - Drug resistance [None]
